FAERS Safety Report 12642792 (Version 1)
Quarter: 2016Q3

REPORT INFORMATION
  Report Type: Spontaneous
  Country: US (occurrence: US)
  Receive Date: 20160811
  Receipt Date: 20160811
  Transmission Date: 20161109
  Serious: No
  Sender: FDA-Public Use
  Company Number: US-JNJFOC-20160624834

PATIENT
  Sex: Male
  Weight: 86.18 kg

DRUGS (3)
  1. FAMOTIDINE. [Suspect]
     Active Substance: FAMOTIDINE
     Indication: PRURITUS
     Route: 048
  2. FAMOTIDINE. [Suspect]
     Active Substance: FAMOTIDINE
     Route: 048
  3. BENADRYL ORIGINAL CREAM [Concomitant]
     Indication: PRURITUS
     Dosage: USED IT ABOUT 3 TIMES AND EVERY TIME HE USED IT, HE USE ABOUT 25% OF THE TUBE,

REACTIONS (3)
  - Adverse event [Unknown]
  - Product use issue [Unknown]
  - Off label use [Unknown]
